FAERS Safety Report 4334656-9 (Version None)
Quarter: 2004Q1

REPORT INFORMATION
  Report Type: 
  Country: None (occurrence: None)
  Receive Date: 20040329
  Receipt Date: 20031212
  Transmission Date: 20041129
  Serious: No
  Sender: FDA-Public Use
  Company Number: 03P-163-0244726-00

PATIENT
  Age: 52 Year
  Sex: Female
  Weight: 74.8435 kg

DRUGS (14)
  1. HUMIRA [Suspect]
     Indication: RHEUMATOID ARTHRITIS
     Dosage: 40 MG, 1 IN 2 WK, SUBCUTANEOUS
     Route: 058
     Dates: start: 20031212
  2. TOPIRMATE [Concomitant]
  3. TRAZODONE HCL [Concomitant]
  4. ORPHENADRINE HYDROCHLORIDE FILM TAB [Concomitant]
  5. FIORICET [Concomitant]
  6. PROPACET 100 [Concomitant]
  7. CETIRIZINE HCL [Concomitant]
  8. ROFECOXIB [Concomitant]
  9. FOLIC ACID [Concomitant]
  10. POTASSIUM CHLORIDE [Concomitant]
  11. ESOMEPRAZOLE [Concomitant]
  12. CONJUGATED ESTROGEN [Concomitant]
  13. ATENOLOL [Concomitant]
  14. HYDROCHLOROTHIAZIDE [Concomitant]

REACTIONS (2)
  - INJECTION SITE INDURATION [None]
  - INJECTION SITE PAIN [None]
